FAERS Safety Report 4815208-0 (Version None)
Quarter: 2005Q4

REPORT INFORMATION
  Report Type: 
  Country: None (occurrence: None)
  Receive Date: 20051027
  Receipt Date: 20051014
  Transmission Date: 20060501
  Serious: Yes (Life-Threatening, Hospitalization, Other)
  Sender: FDA-Public Use
  Company Number: CIP05002187

PATIENT
  Age: 81 Year
  Sex: Female

DRUGS (12)
  1. ACTONEL [Suspect]
     Dosage: 35 MG ONCE WEEKLY, ORAL
     Route: 048
     Dates: start: 20041008
  2. ARIMIDEX [Suspect]
     Indication: BREAST CANCER STAGE I
     Dosage: 1 MG DAILY, ORAL
     Route: 048
     Dates: start: 20041008
  3. CALCIUM W/VITAMIN D NOS [Suspect]
     Indication: OSTEOPOROSIS PROPHYLAXIS
     Dosage: 1000 MG DAILY, ORAL
     Route: 048
     Dates: start: 20041008
  4. HYDROCHLOROTHIAZIDE [Concomitant]
  5. PRAVACHOL [Concomitant]
  6. TOPROL-XL [Concomitant]
  7. AVAPRO [Concomitant]
  8. TIAZAC [Concomitant]
  9. LISINOPRIL [Concomitant]
  10. ASPIRIN [Concomitant]
  11. ATORVASTATIN CALCIUM [Concomitant]
  12. ACE INHIBITOR NOS [Concomitant]

REACTIONS (11)
  - ANAEMIA POSTOPERATIVE [None]
  - AORTIC VALVE CALCIFICATION [None]
  - BRADYCARDIA [None]
  - CARDIAC HYPERTROPHY [None]
  - CELLULITIS [None]
  - CORONARY ARTERY DISEASE [None]
  - DIZZINESS [None]
  - LEUKOCYTOSIS [None]
  - MYOCARDIAL INFARCTION [None]
  - OPERATIVE HAEMORRHAGE [None]
  - PLEURAL EFFUSION [None]
